FAERS Safety Report 8676601 (Version 2)
Quarter: 2013Q4

REPORT INFORMATION
  Report Type: Spontaneous
  Country: US (occurrence: US)
  Receive Date: 20120722
  Receipt Date: 20131101
  Transmission Date: 20140711
  Serious: No
  Sender: FDA-Public Use
  Company Number: US-009507513-1207USA005291

PATIENT
  Age: 55 Year
  Sex: Female

DRUGS (1)
  1. NASONEX [Suspect]
     Indication: NASAL POLYPS
     Dosage: 4 DF, QD
     Route: 045
     Dates: start: 2010

REACTIONS (3)
  - Epistaxis [Recovered/Resolved]
  - Face injury [Unknown]
  - Product quality issue [Unknown]
